FAERS Safety Report 25944399 (Version 1)
Quarter: 2025Q4

REPORT INFORMATION
  Report Type: Spontaneous
  Country: NZ (occurrence: NZ)
  Receive Date: 20251021
  Receipt Date: 20251021
  Transmission Date: 20260117
  Serious: Yes (Disabling)
  Sender: SANDOZ
  Company Number: NZ-SANDOZ-SDZ2025NZ077408

PATIENT
  Sex: Female
  Weight: 90 kg

DRUGS (2)
  1. ESTRADIOL [Suspect]
     Active Substance: ESTRADIOL
     Dosage: 100 UG, BIW
     Route: 062
     Dates: start: 20250801, end: 20251015
  2. ESTRADIOL [Suspect]
     Active Substance: ESTRADIOL
     Indication: Hormone replacement therapy
     Dosage: 75 UG, BIW
     Route: 062
     Dates: start: 20250801, end: 20251015

REACTIONS (4)
  - Hormone replacement therapy [Not Recovered/Not Resolved]
  - Symptom recurrence [Not Recovered/Not Resolved]
  - Poor quality product administered [Unknown]
  - Product adhesion issue [Unknown]

NARRATIVE: CASE EVENT DATE: 20250101
